FAERS Safety Report 7824745-6 (Version None)
Quarter: 2011Q4

REPORT INFORMATION
  Report Type: 
  Country: None (occurrence: None)
  Receive Date: 20111019
  Receipt Date: 20111012
  Transmission Date: 20120403
  Serious: Yes (Life-Threatening, Hospitalization, Other)
  Sender: FDA-Public Use
  Company Number: PHEH2011US03196

PATIENT
  Sex: Female

DRUGS (23)
  1. ATENOLOL [Concomitant]
     Dosage: 75 MG, UNK
  2. ALPRAZOLAM [Concomitant]
     Dosage: 1 MG, FOUR TIMES A DAY
  3. HYDROCORTISONE [Concomitant]
     Dosage: UNK UKN, UNK
  4. ATROVENT [Concomitant]
     Indication: CHRONIC OBSTRUCTIVE PULMONARY DISEASE
     Dosage: UNK UKN, UNK
  5. SYMBICORT [Concomitant]
     Dosage: UNK UKN, BID
  6. TRIAMCINOLONE ACETONIDE [Concomitant]
     Dosage: 0.1 %, UNK
  7. BENADRYL [Concomitant]
     Dosage: 25 MG, BID
  8. CARISOPRODOL [Concomitant]
     Dosage: 350 MG, UNK
  9. AMLODIPINE BESYLATE [Concomitant]
     Dosage: 10 MG, UNK
  10. LASIX [Concomitant]
     Dosage: 40 MG, BID
  11. PROMETHAZINE [Concomitant]
     Dosage: 50 MG, TID
  12. PROAIR (FLUTICASONE PROPIONATE) [Concomitant]
     Dosage: UNK UKN, UNK
  13. TOPAMAX [Concomitant]
     Dosage: 50 MG, BID
  14. RECLAST [Suspect]
     Dosage: UNK UKN, UNK
     Route: 042
     Dates: start: 20101220
  15. SODIUM BICARBONATE [Concomitant]
     Dosage: 50 MG, BID
  16. CYANOCOBALAMIN [Concomitant]
     Dosage: UNK UKN, UNK
  17. MIRAPEX [Concomitant]
     Dosage: UNK UKN, UNK
  18. BENZONATATE [Concomitant]
     Indication: COUGH
     Dosage: 200 MG, TID
  19. ASPIRIN [Concomitant]
     Dosage: 81 MG, UNK
  20. ALBUTEROL SULFATE [Concomitant]
     Dosage: 0.083 %, TID
  21. ACETAMINOPHEN [Concomitant]
     Dosage: UNK UKN, UNK
  22. LYRICA [Concomitant]
     Dosage: 75 MG, TID
  23. PROTONIX [Concomitant]
     Dosage: 40 MG, UNK

REACTIONS (17)
  - HEPATIC FAILURE [None]
  - PLATELET COUNT DECREASED [None]
  - BONE MARROW FAILURE [None]
  - PNEUMONIA VIRAL [None]
  - RENAL FAILURE ACUTE [None]
  - BRAIN INJURY [None]
  - FOOT FRACTURE [None]
  - WEIGHT DECREASED [None]
  - BLOOD PRESSURE INCREASED [None]
  - DYSPNOEA [None]
  - ASTHENIA [None]
  - HYPERHIDROSIS [None]
  - FEELING ABNORMAL [None]
  - EYE PAIN [None]
  - BRONCHITIS [None]
  - INFLUENZA [None]
  - MALAISE [None]
